FAERS Safety Report 4879599-7 (Version None)
Quarter: 2006Q1

REPORT INFORMATION
  Report Type: 
  Country: None (occurrence: None)
  Receive Date: 20060113
  Receipt Date: 20050616
  Transmission Date: 20060701
  Serious: No
  Sender: FDA-Public Use
  Company Number: US-BRISTOL-MYERS SQUIBB COMPANY-13006606

PATIENT
  Age: 47 Year
  Sex: Male
  Weight: 70 kg

DRUGS (1)
  1. PLATINOL [Suspect]
     Route: 042

REACTIONS (5)
  - ANAEMIA [None]
  - CHAPPED LIPS [None]
  - DEAFNESS [None]
  - NAUSEA [None]
  - PHOTOSENSITIVITY REACTION [None]
